FAERS Safety Report 5249944-1 (Version None)
Quarter: 2007Q1

REPORT INFORMATION
  Report Type: 
  Country: None (occurrence: None)
  Receive Date: 20070228
  Receipt Date: 20060106
  Transmission Date: 20070707
  Serious: No
  Sender: FDA-Public Use
  Company Number: US-GLAXOSMITHKLINE-A0588184A

PATIENT
  Sex: Female

DRUGS (3)
  1. LAMICTAL [Suspect]
     Indication: BIPOLAR DISORDER
     Route: 048
     Dates: end: 20060105
  2. LORAZEPAM [Concomitant]
  3. BIRTH CONTROL PILLS [Concomitant]

REACTIONS (3)
  - NAUSEA [None]
  - ORAL PAIN [None]
  - SKIN BURNING SENSATION [None]
